FAERS Safety Report 17480013 (Version 2)
Quarter: 2020Q1

REPORT INFORMATION
  Report Type: Spontaneous
  Country: FR (occurrence: FR)
  Receive Date: 20200228
  Receipt Date: 20200306
  Transmission Date: 20200409
  Serious: Yes (Hospitalization, Other)
  Sender: FDA-Public Use
  Company Number: FR-LUNDBECK-DKLU3013122

PATIENT
  Age: 57 Year
  Sex: Male
  Weight: 56 kg

DRUGS (10)
  1. URBANYL [Suspect]
     Active Substance: CLOBAZAM
     Indication: EPILEPSY
     Route: 048
  2. URBANYL [Suspect]
     Active Substance: CLOBAZAM
     Route: 048
  3. DIAZEPAM. [Suspect]
     Active Substance: DIAZEPAM
     Indication: EPILEPSY
     Route: 048
  4. FORLAX [Concomitant]
     Active Substance: POLYETHYLENE GLYCOL 4000
     Indication: PRODUCT USED FOR UNKNOWN INDICATION
  5. BROMAZEPAM [Suspect]
     Active Substance: BROMAZEPAM
     Indication: AGITATION
     Route: 048
  6. THERALENE [Suspect]
     Active Substance: TRIMEPRAZINE
     Indication: AGITATION
     Route: 048
     Dates: start: 20200114, end: 20200122
  7. XATRAL [Concomitant]
     Active Substance: ALFUZOSIN
     Indication: PRODUCT USED FOR UNKNOWN INDICATION
     Route: 065
  8. GARDENAL [Suspect]
     Active Substance: PHENOBARBITAL
     Indication: EPILEPSY
     Route: 048
  9. URBANYL [Suspect]
     Active Substance: CLOBAZAM
     Route: 048
  10. MICROPAKINE [Concomitant]
     Active Substance: VALPROATE SODIUM
     Indication: PRODUCT USED FOR UNKNOWN INDICATION
     Route: 065

REACTIONS (3)
  - Faecaloma [Recovered/Resolved]
  - Somnolence [Recovered/Resolved]
  - Fall [Unknown]
